FAERS Safety Report 4879501-8 (Version None)
Quarter: 2006Q1

REPORT INFORMATION
  Report Type: 
  Country: None (occurrence: None)
  Receive Date: 20060110
  Receipt Date: 20050111
  Transmission Date: 20060701
  Serious: Yes (Other)
  Sender: FDA-Public Use
  Company Number: HQWYE670918JAN05

PATIENT
  Age: 63 Year
  Sex: Female

DRUGS (11)
  1. MYAMBUTOL [Suspect]
     Indication: TUBERCULOSIS
     Dosage: 047
  2. RIFAMPICIN [Suspect]
     Indication: TUBERCULOSIS
     Dosage: 047
  3. ISONIAZID [Concomitant]
  4. AZATHIOPRINE [Concomitant]
  5. PREDNISOLONE [Concomitant]
  6. PYRAZINAMIDE [Concomitant]
  7. ANTITHYMOCYTE IMMUNOGLOBULIN [Concomitant]
  8. STREPTOMYCIN [Concomitant]
  9. CRAVIT [Concomitant]
  10. CYCLOSPORINE [Concomitant]
  11. . [Suspect]

REACTIONS (1)
  - HEPATITIS [None]
